FAERS Safety Report 20999356 (Version 2)
Quarter: 2022Q3

REPORT INFORMATION
  Report Type: Report from Study
  Country: DO (occurrence: DO)
  Receive Date: 20220623
  Receipt Date: 20220802
  Transmission Date: 20221027
  Serious: Yes (Life-Threatening, Other)
  Sender: FDA-Public Use
  Company Number: DO-NOVARTISPH-PHHY2018DO197148

PATIENT
  Sex: Male

DRUGS (4)
  1. SECUKINUMAB [Suspect]
     Active Substance: SECUKINUMAB
     Indication: Psoriatic arthropathy
     Dosage: UNK
     Route: 065
  2. SECUKINUMAB [Suspect]
     Active Substance: SECUKINUMAB
     Indication: Psoriasis
     Dosage: 300 MG, QMO
     Route: 058
     Dates: start: 20200526
  3. SECUKINUMAB [Suspect]
     Active Substance: SECUKINUMAB
     Dosage: 300 MG, QMO
     Route: 058
  4. SECUKINUMAB [Suspect]
     Active Substance: SECUKINUMAB
     Dosage: 300 MG, QMO
     Route: 058
     Dates: start: 20200602

REACTIONS (16)
  - Depression [Unknown]
  - Haemorrhage [Unknown]
  - Drug abuse [Not Recovered/Not Resolved]
  - Stress [Not Recovered/Not Resolved]
  - Abdominal pain upper [Unknown]
  - Pyrexia [Unknown]
  - Skin lesion [Not Recovered/Not Resolved]
  - Anxiety [Unknown]
  - Pruritus [Unknown]
  - Scratch [Unknown]
  - Skin plaque [Unknown]
  - Dandruff [Unknown]
  - Discomfort [Unknown]
  - Temperature intolerance [Unknown]
  - Psoriasis [Not Recovered/Not Resolved]
  - Product availability issue [Unknown]

NARRATIVE: CASE EVENT DATE: 20210101
